FAERS Safety Report 5048430-1 (Version None)
Quarter: 2006Q3

REPORT INFORMATION
  Report Type: 
  Country: None (occurrence: None)
  Receive Date: 20060705
  Receipt Date: 20060623
  Transmission Date: 20061208
  Serious: Yes (Other)
  Sender: FDA-Public Use
  Company Number: 2006079838

PATIENT
  Sex: Female

DRUGS (10)
  1. DEPO-PROVERA [Suspect]
     Dosage: INTRAMUSCULAR
     Route: 030
  2. FUROSEMIDE [Concomitant]
  3. ZOLOFT [Concomitant]
  4. XANAX [Concomitant]
  5. POTASSIUM (POTASSIUM) [Concomitant]
  6. CALCIUM (CALCIUM) [Concomitant]
  7. VITAMINS (VITAMINS) [Concomitant]
  8. TEGRETOL [Concomitant]
  9. ABILIFY(ARIPRAZOLE) [Concomitant]
  10. METRONIDAZOLE [Concomitant]

REACTIONS (6)
  - ACTIVITIES OF DAILY LIVING IMPAIRED [None]
  - ERYTHEMA [None]
  - GRUNTING [None]
  - INSOMNIA [None]
  - OEDEMA PERIPHERAL [None]
  - PSYCHOMOTOR HYPERACTIVITY [None]
